FAERS Safety Report 9704924 (Version 1)
Quarter: 2013Q4

REPORT INFORMATION
  Report Type: Not Available
  Country: US (occurrence: US)
  Receive Date: 20131122
  Receipt Date: 20131122
  Transmission Date: 20140711
  Serious: No
  Sender: FDA-Public Use
  Company Number: US-AMARIN PHARMA, INC.-2013AMR000067

PATIENT
  Sex: Female

DRUGS (9)
  1. VASCEPA [Suspect]
     Indication: LIPOPROTEIN (A) ABNORMAL
     Route: 065
     Dates: start: 20130626
  2. SEREVENT [Concomitant]
     Indication: ASTHMA
  3. SIMVASTATIN [Concomitant]
     Indication: LIPOPROTEIN (A) ABNORMAL
     Route: 065
  4. MULTIVITAMINS [Concomitant]
     Indication: SUPPLEMENTATION THERAPY
     Route: 065
  5. CALCIUM [Concomitant]
     Indication: SUPPLEMENTATION THERAPY
     Route: 065
  6. MAGNESIUM [Concomitant]
     Indication: SUPPLEMENTATION THERAPY
     Route: 065
  7. EVENING PRIMROSE OIL [Concomitant]
     Indication: SUPPLEMENTATION THERAPY
     Route: 065
  8. FLAXSEED OIL [Concomitant]
     Indication: SUPPLEMENTATION THERAPY
     Route: 065
  9. CHOLECALCIFEROL [Concomitant]
     Indication: SUPPLEMENTATION THERAPY
     Route: 065

REACTIONS (1)
  - Back pain [Recovered/Resolved]
